FAERS Safety Report 4928819-9 (Version None)
Quarter: 2006Q1

REPORT INFORMATION
  Report Type: 
  Country: None (occurrence: None)
  Receive Date: 20060228
  Receipt Date: 20060228
  Transmission Date: 20060701
  Serious: No
  Sender: FDA-Public Use
  Company Number: None

PATIENT
  Age: 82 Year
  Sex: Male

DRUGS (2)
  1. LIPITOR [Suspect]
     Dosage: ONE DAILY BY MOUTH
     Route: 048
     Dates: start: 20050101, end: 20060201
  2. MULTIVITAMIN [Concomitant]

REACTIONS (2)
  - BLOOD CHOLESTEROL INCREASED [None]
  - PHARMACEUTICAL PRODUCT COMPLAINT [None]
